FAERS Safety Report 6788562-0 (Version None)
Quarter: 2010Q2

REPORT INFORMATION
  Report Type: 
  Country: None (occurrence: None)
  Receive Date: 20100623
  Receipt Date: 20080403
  Transmission Date: 20101027
  Serious: No
  Sender: FDA-Public Use
  Company Number: US-PFIZER INC-2008030276

PATIENT
  Sex: Female
  Weight: 63.636 kg

DRUGS (1)
  1. XALATAN [Suspect]
     Indication: GLAUCOMA

REACTIONS (1)
  - HEADACHE [None]
